FAERS Safety Report 10256779 (Version 2)
Quarter: 2014Q3

REPORT INFORMATION
  Report Type: Spontaneous
  Country: DE (occurrence: DE)
  Receive Date: 20140624
  Receipt Date: 20140806
  Transmission Date: 20150326
  Serious: Yes (Hospitalization, Other)
  Sender: FDA-Public Use
  Company Number: PHHY2014DE076911

PATIENT
  Sex: Male

DRUGS (10)
  1. ULTIBRO BREEZHALER [Suspect]
     Active Substance: GLYCOPYRRONIUM\INDACATEROL
     Dosage: UNK UKN, UNK
     Dates: start: 201311
  2. ONBREZ [Suspect]
     Active Substance: INDACATEROL
     Dosage: 240 UG, UNK
     Dates: start: 201308
  3. SPIRIVA [Suspect]
     Active Substance: TIOTROPIUM BROMIDE MONOHYDRATE
     Dosage: UNK UKN, UNK
     Dates: start: 201308
  4. SPIRIVA [Suspect]
     Active Substance: TIOTROPIUM BROMIDE MONOHYDRATE
     Dosage: UNK
     Dates: start: 201404
  5. SYMBICORT [Concomitant]
     Active Substance: BUDESONIDE\FORMOTEROL FUMARATE DIHYDRATE
     Dosage: UNK UKN, UNK
     Dates: start: 201406
  6. SEEBRI BREEZHALER [Suspect]
     Active Substance: GLYCOPYRRONIUM
     Dosage: UNK UKN, UNK
     Dates: start: 2014
  7. ONBREZ [Suspect]
     Active Substance: INDACATEROL
     Dosage: UNK UKN, UNK
     Dates: start: 2014
  8. SEEBRI BREEZHALER [Suspect]
     Active Substance: GLYCOPYRRONIUM
     Dosage: UNK UKN, UNK
     Dates: start: 201406
  9. CORTISONE [Suspect]
     Active Substance: CORTISONE\HYDROCORTISONE
     Dosage: 20 MG, QD
     Dates: start: 201311, end: 201401
  10. SYMBICORT [Concomitant]
     Active Substance: BUDESONIDE\FORMOTEROL FUMARATE DIHYDRATE
     Dosage: UNK UKN, UNK
     Dates: start: 201404

REACTIONS (8)
  - Kidney infection [Recovered/Resolved]
  - Cough [Unknown]
  - Pharyngeal oedema [Recovered/Resolved]
  - Chronic obstructive pulmonary disease [Recovered/Resolved]
  - Dyspnoea [Recovered/Resolved]
  - Heart rate irregular [Recovered/Resolved]
  - Tachycardia [Recovered/Resolved]
  - Hypertension [Recovered/Resolved]

NARRATIVE: CASE EVENT DATE: 201308
